FAERS Safety Report 13386510 (Version 3)
Quarter: 2017Q2

REPORT INFORMATION
  Report Type: Spontaneous
  Country: US (occurrence: US)
  Receive Date: 20170330
  Receipt Date: 20170412
  Transmission Date: 20170830
  Serious: Yes (Other)
  Sender: FDA-Public Use
  Company Number: US-AMGEN-USASP2017047053

PATIENT
  Age: 61 Year
  Sex: Female

DRUGS (2)
  1. NEULASTA [Suspect]
     Active Substance: PEGFILGRASTIM
     Indication: PRODUCT USED FOR UNKNOWN INDICATION
     Dosage: UNK
     Route: 065
  2. DECADRON [Suspect]
     Active Substance: DEXAMETHASONE
     Indication: BREAST CANCER
     Dosage: UNK
     Route: 065

REACTIONS (11)
  - Dry eye [Not Recovered/Not Resolved]
  - Application site haemorrhage [Unknown]
  - Application site bruise [Unknown]
  - Application site pain [Recovered/Resolved]
  - Sinus disorder [Not Recovered/Not Resolved]
  - Application site discolouration [Unknown]
  - Paranasal sinus hypersecretion [Unknown]
  - Pulmonary thrombosis [Unknown]
  - Blood glucose increased [Not Recovered/Not Resolved]
  - Application site swelling [Unknown]
  - Pain in extremity [Recovered/Resolved]

NARRATIVE: CASE EVENT DATE: 2017
